FAERS Safety Report 25753040 (Version 1)
Quarter: 2025Q3

REPORT INFORMATION
  Report Type: Report from Study
  Country: US (occurrence: US)
  Receive Date: 20250902
  Receipt Date: 20250902
  Transmission Date: 20251021
  Serious: Yes (Hospitalization)
  Sender: ABBVIE
  Company Number: US-ABBVIE-6439026

PATIENT
  Age: 27 Year
  Sex: Male

DRUGS (2)
  1. SKYRIZI [Suspect]
     Active Substance: RISANKIZUMAB-RZAA
     Indication: Crohn^s disease
     Route: 058
     Dates: start: 20231120, end: 2025
  2. SKYRIZI [Suspect]
     Active Substance: RISANKIZUMAB-RZAA
     Route: 058
     Dates: start: 20250717

REACTIONS (9)
  - Spinal fracture [Recovering/Resolving]
  - Clostridium difficile infection [Recovered/Resolved]
  - Abdominal pain upper [Recovering/Resolving]
  - Diarrhoea haemorrhagic [Recovered/Resolved]
  - Staphylococcal infection [Recovered/Resolved]
  - Osteomyelitis [Unknown]
  - Gait disturbance [Unknown]
  - Chest injury [Unknown]
  - Diarrhoea [Recovering/Resolving]

NARRATIVE: CASE EVENT DATE: 20240101
